FAERS Safety Report 24103074 (Version 1)
Quarter: 2024Q3

REPORT INFORMATION
  Report Type: Report from Study
  Country: US (occurrence: None)
  Receive Date: 20240717
  Receipt Date: 20240717
  Transmission Date: 20241017
  Serious: Yes (Hospitalization)
  Sender: ASTRAZENECA
  Company Number: 2019SF03074

PATIENT
  Age: 27468 Day
  Sex: Female

DRUGS (1)
  1. TAGRISSO [Suspect]
     Active Substance: OSIMERTINIB
     Indication: Lung neoplasm malignant
     Route: 048
     Dates: start: 20190611

REACTIONS (2)
  - Blood potassium abnormal [Recovered/Resolved]
  - Blood sodium abnormal [Recovered/Resolved]

NARRATIVE: CASE EVENT DATE: 20190711
